FAERS Safety Report 5066272-8 (Version None)
Quarter: 2006Q3

REPORT INFORMATION
  Report Type: 
  Country: None (occurrence: None)
  Receive Date: 20060728
  Receipt Date: 20060718
  Transmission Date: 20061208
  Serious: Yes (Hospitalization)
  Sender: FDA-Public Use
  Company Number: 2006-07-0647

PATIENT
  Age: 31 Year
  Sex: Female

DRUGS (4)
  1. PEG-INTRON [Suspect]
     Indication: HEPATITIS C
     Dosage: 150 MCG QWK SUBCUTANEOUS
     Route: 058
     Dates: start: 20060612
  2. REBETOL [Suspect]
     Indication: HEPATITIS C
     Dosage: 1400 MG QD ORAL
     Route: 048
     Dates: start: 20060612
  3. PRENATAL VITAMINS TABLETS [Concomitant]
  4. SARAFEM (FLUOXETINE) CAPSULES [Concomitant]

REACTIONS (8)
  - ANAL FISSURE [None]
  - ANAL HAEMORRHAGE [None]
  - BONE PAIN [None]
  - DRY MOUTH [None]
  - INJECTION SITE BRUISING [None]
  - MOOD SWINGS [None]
  - PLATELET COUNT DECREASED [None]
  - WHITE BLOOD CELL COUNT DECREASED [None]
